FAERS Safety Report 6654484-9 (Version None)
Quarter: 2010Q1

REPORT INFORMATION
  Report Type: 
  Country: None (occurrence: None)
  Receive Date: 20100326
  Receipt Date: 20100316
  Transmission Date: 20100710
  Serious: Yes (Hospitalization, Other)
  Sender: FDA-Public Use
  Company Number: US-PFIZER INC-2010034160

PATIENT
  Sex: Female
  Weight: 60.771 kg

DRUGS (13)
  1. LYRICA [Suspect]
     Indication: FIBROMYALGIA
     Dosage: 50 MG, 2X/DAY
     Route: 048
     Dates: start: 20090901
  2. METFORMIN [Concomitant]
     Indication: DIABETES MELLITUS
     Dosage: 1000 MG, 2X/DAY
     Route: 048
  3. GLIPIZIDE [Concomitant]
     Indication: DIABETES MELLITUS
     Dosage: 5 MG, 1X/DAY
     Route: 048
  4. DIOVAN [Concomitant]
     Indication: CARDIAC DISORDER
     Dosage: 180 MG, 1X/DAY
     Route: 048
  5. DIOVAN [Concomitant]
     Indication: HYPERTENSION
  6. DILTIAZEM HYDROCHLORIDE [Concomitant]
     Indication: CARDIAC DISORDER
     Dosage: 240 MG, 1X/DAY
     Route: 048
  7. DILTIAZEM HYDROCHLORIDE [Concomitant]
     Indication: HYPERTENSION
  8. ALLEGRA [Concomitant]
     Indication: HYPERSENSITIVITY
     Dosage: 10 MG, 1X/DAY
     Route: 048
  9. MONTELUKAST SODIUM [Concomitant]
     Indication: HYPERSENSITIVITY
     Dosage: UNK
     Route: 048
  10. WARFARIN SODIUM [Concomitant]
     Indication: HEART VALVE REPLACEMENT
     Dosage: ALTERNATING 4MG AND 5MG
     Route: 048
  11. FOLIC ACID [Concomitant]
     Indication: HAEMOLYSIS
     Dosage: UNK
     Route: 048
  12. VITAMIN D [Concomitant]
     Indication: HAEMOLYSIS
     Dosage: UNK
     Route: 048
  13. IRON [Concomitant]
     Indication: HAEMOLYSIS
     Dosage: UNK
     Route: 048

REACTIONS (9)
  - ARTHRALGIA [None]
  - BACK PAIN [None]
  - CHEST PAIN [None]
  - GAIT DISTURBANCE [None]
  - LIMB DISCOMFORT [None]
  - MENOPAUSE DELAYED [None]
  - RECTAL HAEMORRHAGE [None]
  - ROAD TRAFFIC ACCIDENT [None]
  - SOMNOLENCE [None]
